FAERS Safety Report 7326434-3 (Version None)
Quarter: 2011Q1

REPORT INFORMATION
  Report Type: 
  Country: None (occurrence: None)
  Receive Date: 20110302
  Receipt Date: 20110218
  Transmission Date: 20110831
  Serious: Yes (Death, Life-Threatening, Hospitalization)
  Sender: FDA-Public Use
  Company Number: JP-ELI_LILLY_AND_COMPANY-JP201012004532

PATIENT
  Sex: Male
  Weight: 42.5 kg

DRUGS (5)
  1. MAGNESIUM OXIDE [Concomitant]
     Indication: CONSTIPATION
     Dosage: 3 G, DAILY (1/D)
     Route: 048
     Dates: start: 20100312, end: 20101209
  2. ELENTAL [Concomitant]
     Indication: NUTRITIONAL SUPPORT
     Dosage: 80 G, DAILY (1/D)
     Route: 048
     Dates: start: 20100512, end: 20101209
  3. GEMZAR [Suspect]
     Indication: GALLBLADDER CANCER RECURRENT
     Dosage: 1000 MG, OTHER
     Route: 042
     Dates: start: 20101029, end: 20101126
  4. BETAMETHASONE [Concomitant]
     Dosage: 1 G, DAILY (1/D)
     Route: 048
     Dates: start: 20101020, end: 20101209
  5. WARFARIN [Concomitant]
     Indication: THROMBOSIS
     Dosage: UNK, DAILY (1/D)
     Route: 048
     Dates: start: 20100312, end: 20101214

REACTIONS (3)
  - INTERSTITIAL LUNG DISEASE [None]
  - DECREASED APPETITE [None]
  - PNEUMONIA ASPIRATION [None]
